FAERS Safety Report 7703687-0 (Version None)
Quarter: 2011Q3

REPORT INFORMATION
  Report Type: 
  Country: None (occurrence: None)
  Receive Date: 20110823
  Receipt Date: 20110815
  Transmission Date: 20111222
  Serious: Yes (Other)
  Sender: FDA-Public Use
  Company Number: US-US-EMD SERONO, INC.-7076988

PATIENT
  Sex: Male

DRUGS (4)
  1. UNSPECIFIED INSULIN [Concomitant]
     Indication: TYPE 2 DIABETES MELLITUS
  2. PLAVIX [Concomitant]
     Indication: COAGULOPATHY
  3. ASPIRIN [Concomitant]
     Indication: COAGULOPATHY
  4. REBIF [Suspect]
     Indication: MULTIPLE SCLEROSIS
     Route: 058
     Dates: start: 20110312

REACTIONS (2)
  - MASS [None]
  - THROMBOSIS [None]
